FAERS Safety Report 4473837-0 (Version None)
Quarter: 2004Q4

REPORT INFORMATION
  Report Type: 
  Country: None (occurrence: None)
  Receive Date: 20041008
  Receipt Date: 20041008
  Transmission Date: 20050328
  Serious: Yes (Hospitalization)
  Sender: FDA-Public Use
  Company Number: None

PATIENT
  Age: 66 Year
  Sex: Male
  Weight: 109 kg

DRUGS (1)
  1. LITHIUM CARBONATE [Suspect]
     Indication: SCHIZOPHRENIA
     Dosage: 300 MG TID PO
     Route: 048
     Dates: start: 20040721, end: 20040730

REACTIONS (1)
  - NEPHROGENIC DIABETES INSIPIDUS [None]
